FAERS Safety Report 16165379 (Version 1)
Quarter: 2019Q2

REPORT INFORMATION
  Report Type: Spontaneous
  Country: HR (occurrence: HR)
  Receive Date: 20190405
  Receipt Date: 20190405
  Transmission Date: 20190711
  Serious: Yes (Hospitalization)
  Sender: FDA-Public Use
  Company Number: HR-ALLERGAN-1915048US

PATIENT
  Sex: Male

DRUGS (1)
  1. TESTOSTERONE UNK [Suspect]
     Active Substance: TESTOSTERONE
     Indication: PRODUCT USED FOR UNKNOWN INDICATION
     Dosage: ABUSE
     Route: 065

REACTIONS (5)
  - Hypertension [Unknown]
  - Drug abuse [Unknown]
  - Dizziness [Unknown]
  - Renal impairment [Unknown]
  - Weight increased [Unknown]
